FAERS Safety Report 11428834 (Version 1)
Quarter: 2015Q3

REPORT INFORMATION
  Report Type: Spontaneous
  Country: US (occurrence: US)
  Receive Date: 20150828
  Receipt Date: 20150828
  Transmission Date: 20151125
  Serious: No
  Sender: FDA-Public Use
  Company Number: US-ROCHE-1217315

PATIENT
  Age: 61 Year
  Sex: Female

DRUGS (6)
  1. TELAPREVIR [Suspect]
     Active Substance: TELAPREVIR
     Dosage: SUSPENDED FOR ONE WEEK THEN RESTARTED.
     Route: 065
     Dates: start: 201304
  2. PEGASYS [Suspect]
     Active Substance: PEGINTERFERON ALFA-2A
     Indication: HEPATITIS C
     Route: 058
     Dates: start: 20130326, end: 201304
  3. PEGASYS [Suspect]
     Active Substance: PEGINTERFERON ALFA-2A
     Dosage: SUSPENDED FOR A WEEK THEN RESTARTED
     Route: 058
     Dates: start: 201304
  4. RIBAVIRIN. [Suspect]
     Active Substance: RIBAVIRIN
     Indication: HEPATITIS C
     Dosage: 1000 MG DAILY (2/3)
     Route: 065
     Dates: start: 20130326, end: 201304
  5. RIBAVIRIN. [Suspect]
     Active Substance: RIBAVIRIN
     Dosage: 1000 MG DAILY (2/3) SUSPENDED FOR ONE WEEK THEN RESTARTED.
     Route: 065
     Dates: start: 201304
  6. TELAPREVIR [Suspect]
     Active Substance: TELAPREVIR
     Indication: HEPATITIS C
     Route: 065
     Dates: start: 20130326, end: 201304

REACTIONS (10)
  - Thrombosis [Recovered/Resolved]
  - Nasal obstruction [Recovered/Resolved]
  - Rash pruritic [Unknown]
  - Urticaria [Unknown]
  - Epistaxis [Recovered/Resolved]
  - Dizziness [Unknown]
  - Irritability [Unknown]
  - Insomnia [Unknown]
  - Sensory disturbance [Unknown]
  - Sunburn [Unknown]

NARRATIVE: CASE EVENT DATE: 201304
